FAERS Safety Report 7161314-8 (Version None)
Quarter: 2010Q4

REPORT INFORMATION
  Report Type: 
  Country: None (occurrence: None)
  Receive Date: 20101210
  Receipt Date: 20101210
  Transmission Date: 20110411
  Serious: Yes (Other)
  Sender: FDA-Public Use
  Company Number: None

PATIENT
  Age: 16 Year
  Sex: Female
  Weight: 42.1845 kg

DRUGS (1)
  1. YASMIN [Suspect]
     Indication: OVARIAN CYST
     Dosage: ONE PILL 1 DAILY
     Dates: start: 20080201, end: 20090914

REACTIONS (1)
  - GALLBLADDER DISORDER [None]
